FAERS Safety Report 5542693-1 (Version None)
Quarter: 2007Q4

REPORT INFORMATION
  Report Type: 
  Country: None (occurrence: None)
  Receive Date: 20071206
  Receipt Date: 20071126
  Transmission Date: 20080405
  Serious: Yes (Other)
  Sender: FDA-Public Use
  Company Number: 230717J07USA

PATIENT
  Age: 69 Year
  Sex: Female

DRUGS (7)
  1. REBIF [Suspect]
     Indication: MULTIPLE SCLEROSIS
     Dosage: 44 MCG, 3 IN 1 WEEKS, SUBCUTANEOUS
     Route: 058
     Dates: start: 20060703
  2. OXYBUTYNIN (OXYBUTYNIN /00538901/) [Concomitant]
  3. ZYRTEC [Concomitant]
  4. ASPIRIN [Concomitant]
  5. CALCIUM (CALCIUM-SANDOZ /00009901/) [Concomitant]
  6. VITAMIN (VITAMINS NOS) [Concomitant]
  7. GLUCOSAMINE CHONDROITIN (GLUCOSAMINE W/CHONDROITIN) [Concomitant]

REACTIONS (2)
  - METRORRHAGIA [None]
  - UTERINE PROLAPSE [None]
